FAERS Safety Report 8332592-4 (Version None)
Quarter: 2012Q2

REPORT INFORMATION
  Report Type: 
  Country: None (occurrence: None)
  Receive Date: 20120503
  Receipt Date: 20110825
  Transmission Date: 20120825
  Serious: Yes (Disabling)
  Sender: FDA-Public Use
  Company Number: DE-BAYER-2011-077011

PATIENT
  Age: 30 Year
  Sex: Male

DRUGS (1)
  1. CIPROFLOXACIN [Suspect]
     Dosage: 12 PILLS (DATES NOT PROVIDED)
     Dates: start: 20091001

REACTIONS (2)
  - MOBILITY DECREASED [None]
  - PARALYSIS [None]
